FAERS Safety Report 19406697 (Version 3)
Quarter: 2021Q3

REPORT INFORMATION
  Report Type: Report from Study
  Country: FR (occurrence: FR)
  Receive Date: 20210611
  Receipt Date: 20210923
  Transmission Date: 20211014
  Serious: Yes (Life-Threatening, Hospitalization)
  Sender: FDA-Public Use
  Company Number: PHHO2018FR012398

PATIENT
  Age: 40 Year
  Sex: Female
  Weight: 75 kg

DRUGS (4)
  1. PDR001 [Suspect]
     Active Substance: SPARTALIZUMAB
     Indication: METASTATIC MALIGNANT MELANOMA
     Dosage: 400 MG, Q4W
     Route: 042
     Dates: start: 20181022, end: 20181119
  2. PDR001 [Suspect]
     Active Substance: SPARTALIZUMAB
     Dosage: 400 MG, Q4W
     Route: 042
     Dates: start: 20181211
  3. INC280 [Suspect]
     Active Substance: CAPMATINIB
     Indication: METASTATIC MALIGNANT MELANOMA
     Dosage: 400 MG, BID
     Route: 048
     Dates: start: 20181022, end: 20181104
  4. PARACETAMOL [Concomitant]
     Active Substance: ACETAMINOPHEN
     Indication: PYREXIA
     Dosage: UNK
     Route: 065
     Dates: start: 20181030

REACTIONS (3)
  - Diarrhoea [Recovered/Resolved]
  - Nausea [Recovered/Resolved]
  - Drug-induced liver injury [Recovered/Resolved]

NARRATIVE: CASE EVENT DATE: 20181029
